FAERS Safety Report 5342592-4 (Version None)
Quarter: 2007Q2

REPORT INFORMATION
  Report Type: 
  Country: None (occurrence: None)
  Receive Date: 20070601
  Receipt Date: 20061215
  Transmission Date: 20071010
  Serious: No
  Sender: FDA-Public Use
  Company Number: A0630777A

PATIENT
  Age: 77 Year
  Sex: Male

DRUGS (5)
  1. AUGMENTIN XR [Suspect]
     Indication: ACUTE SINUSITIS
     Dosage: 2000MG TWICE PER DAY
     Route: 048
     Dates: start: 20061127
  2. BACTROBAN [Suspect]
     Indication: NASAL DRYNESS
     Route: 045
  3. ACETAMINOPHEN [Concomitant]
  4. TOPROL-XL [Concomitant]
  5. COUMADIN [Concomitant]

REACTIONS (5)
  - BLOOD PRESSURE DECREASED [None]
  - DRUG INTERACTION [None]
  - EPISTAXIS [None]
  - INTERNATIONAL NORMALISED RATIO DECREASED [None]
  - INTERNATIONAL NORMALISED RATIO INCREASED [None]
